FAERS Safety Report 4503688-X (Version None)
Quarter: 2004Q4

REPORT INFORMATION
  Report Type: 
  Country: None (occurrence: None)
  Receive Date: 20040928
  Receipt Date: 20040610
  Transmission Date: 20050328
  Serious: No
  Sender: FDA-Public Use
  Company Number: 04P-163-0263451-00

PATIENT
  Age: 64 Year
  Sex: Female

DRUGS (6)
  1. HUMIRA [Suspect]
     Indication: RHEUMATOID ARTHRITIS
     Dosage: 40 MG, 1 IN 2 WK, SUBCUTANEOUS
     Route: 058
     Dates: start: 20040301, end: 20040601
  2. PREDNISONE [Concomitant]
  3. LEFLUNOMIDE [Concomitant]
  4. FOLIC ACID [Concomitant]
  5. MULTIVITAMIN [Concomitant]
  6. CALCIUM CARBONATE [Concomitant]

REACTIONS (4)
  - BALANCE DISORDER [None]
  - DIFFICULTY IN WALKING [None]
  - RASH [None]
  - SPEECH DISORDER [None]
